FAERS Safety Report 25386907 (Version 2)
Quarter: 2025Q2

REPORT INFORMATION
  Report Type: Spontaneous
  Country: US (occurrence: US)
  Receive Date: 20250602
  Receipt Date: 20250620
  Transmission Date: 20250717
  Serious: No
  Sender: PFIZER
  Company Number: US-PFIZER INC-PV202500065348

PATIENT
  Age: 64 Year
  Sex: Female
  Weight: 145 kg

DRUGS (2)
  1. PRISTIQ EXTENDED-RELEASE [Suspect]
     Active Substance: DESVENLAFAXINE SUCCINATE
     Dosage: 100 MG, 1X/DAY
     Dates: start: 202505
  2. PRISTIQ EXTENDED-RELEASE [Suspect]
     Active Substance: DESVENLAFAXINE SUCCINATE
     Route: 048

REACTIONS (6)
  - Feeling abnormal [Recovering/Resolving]
  - Photophobia [Recovering/Resolving]
  - Irritability [Recovering/Resolving]
  - Agitation [Unknown]
  - Anxiety [Unknown]
  - Vision blurred [Unknown]

NARRATIVE: CASE EVENT DATE: 20250518
